FAERS Safety Report 13031076 (Version 2)
Quarter: 2016Q4

REPORT INFORMATION
  Report Type: Spontaneous
  Country: DE (occurrence: DE)
  Receive Date: 20161215
  Receipt Date: 20161229
  Transmission Date: 20170207
  Serious: Yes (Other)
  Sender: FDA-Public Use
  Company Number: DE-DEPOMED, INC.-DE-2016DEP012924

PATIENT
  Age: 47 Year
  Sex: Female

DRUGS (1)
  1. FENTANYL. [Suspect]
     Active Substance: FENTANYL
     Indication: NEURALGIA
     Dosage: HIGH DOSE PATCH

REACTIONS (3)
  - Flank pain [Recovered/Resolved]
  - Oliguria [Recovered/Resolved]
  - Hydronephrosis [Recovered/Resolved]
